FAERS Safety Report 7313309-9 (Version None)
Quarter: 2011Q1

REPORT INFORMATION
  Report Type: 
  Country: None (occurrence: None)
  Receive Date: 20110225
  Receipt Date: 20101027
  Transmission Date: 20110831
  Serious: No
  Sender: FDA-Public Use
  Company Number: US-MYLANLABS-2010S1017791

PATIENT
  Sex: Female

DRUGS (7)
  1. METANX [Concomitant]
  2. FLONASE [Concomitant]
  3. SYNTHROID [Concomitant]
  4. INDAPAMIDE [Concomitant]
  5. VITAMIN D [Concomitant]
  6. METFORMIN HCL [Suspect]
     Indication: DIABETES MELLITUS
     Route: 048
     Dates: start: 20100916, end: 20100920
  7. CYMBALTA [Concomitant]

REACTIONS (4)
  - HEADACHE [None]
  - DIARRHOEA [None]
  - BLOOD GLUCOSE INCREASED [None]
  - NAUSEA [None]
